FAERS Safety Report 18950013 (Version 3)
Quarter: 2022Q1

REPORT INFORMATION
  Report Type: Report from Study
  Country: CO (occurrence: CO)
  Receive Date: 20210227
  Receipt Date: 20220314
  Transmission Date: 20220423
  Serious: Yes (Hospitalization)
  Sender: FDA-Public Use
  Company Number: NVSC2021CO018352

PATIENT
  Age: 24 Year
  Sex: Female

DRUGS (2)
  1. ELTROMBOPAG OLAMINE [Suspect]
     Active Substance: ELTROMBOPAG OLAMINE
     Indication: Immune thrombocytopenia
     Dosage: UNK, QD (SINCE PATIENT WAS 13 YEARS OLD)
     Route: 048
  2. ELTROMBOPAG OLAMINE [Suspect]
     Active Substance: ELTROMBOPAG OLAMINE
     Dosage: UNK, QD
     Route: 048

REACTIONS (8)
  - Illness [Unknown]
  - Epistaxis [Unknown]
  - Dizziness [Unknown]
  - Anaemia [Unknown]
  - Syncope [Unknown]
  - Immune thrombocytopenia [Unknown]
  - Disease recurrence [Unknown]
  - Platelet count decreased [Not Recovered/Not Resolved]

NARRATIVE: CASE EVENT DATE: 20210201
